FAERS Safety Report 10654370 (Version 1)
Quarter: 2014Q4

REPORT INFORMATION
  Report Type: Spontaneous
  Country: US (occurrence: None)
  Receive Date: 20141215
  Receipt Date: 20141215
  Transmission Date: 20150529
  Serious: Yes (Hospitalization)
  Sender: FDA-Public Use
  Company Number: None

PATIENT
  Age: 63 Year
  Sex: Male
  Weight: 55.9 kg

DRUGS (2)
  1. CARBOPLATIN. [Suspect]
     Active Substance: CARBOPLATIN
     Dates: end: 20141128
  2. TAXOTERE [Suspect]
     Active Substance: DOCETAXEL
     Dates: end: 20141128

REACTIONS (8)
  - Nausea [None]
  - Vomiting [None]
  - Moraxella test positive [None]
  - Clostridium test positive [None]
  - Dyspepsia [None]
  - Throat irritation [None]
  - Hyponatraemia [None]
  - Pancytopenia [None]

NARRATIVE: CASE EVENT DATE: 20141204
